FAERS Safety Report 25377207 (Version 1)
Quarter: 2025Q2

REPORT INFORMATION
  Report Type: Spontaneous
  Country: CN (occurrence: CN)
  Receive Date: 20250530
  Receipt Date: 20250530
  Transmission Date: 20250716
  Serious: Yes (Hospitalization)
  Sender: TAKEDA
  Company Number: CN-HUTCHMED LIMITED-HMP2025CN01282

PATIENT
  Age: 56 Year
  Sex: Male
  Weight: 75 kg

DRUGS (2)
  1. FRUQUINTINIB [Suspect]
     Active Substance: FRUQUINTINIB
     Indication: Rectal adenocarcinoma
     Dosage: 3 MILLIGRAM, QD
     Dates: start: 20250512, end: 20250518
  2. TIPIRACIL HYDROCHLORIDE\TRIFLURIDINE [Concomitant]
     Active Substance: TIPIRACIL HYDROCHLORIDE\TRIFLURIDINE
     Indication: Rectal adenocarcinoma
     Dosage: 60 MILLIGRAM, BID
     Dates: start: 20250512, end: 20250518

REACTIONS (2)
  - White blood cell count decreased [Unknown]
  - Neutrophil count decreased [Unknown]

NARRATIVE: CASE EVENT DATE: 20250519
